FAERS Safety Report 21604473 (Version 1)
Quarter: 2022Q4

REPORT INFORMATION
  Report Type: Spontaneous
  Country: US (occurrence: None)
  Receive Date: 20221116
  Receipt Date: 20221116
  Transmission Date: 20230112
  Serious: Yes (Other)
  Sender: FDA-Public Use
  Company Number: 2022A354239

PATIENT
  Sex: Male
  Weight: 88.5 kg

DRUGS (2)
  1. BUDESONIDE\FORMOTEROL\GLYCOPYRRONIUM [Suspect]
     Active Substance: BUDESONIDE\FORMOTEROL\GLYCOPYRRONIUM
     Indication: Chronic obstructive pulmonary disease
     Dosage: 2, Q8-12H
     Route: 055
     Dates: start: 20210601
  2. OXYGEN [Suspect]
     Active Substance: OXYGEN
     Indication: Chronic obstructive pulmonary disease
     Dosage: 24/7
     Route: 055
     Dates: start: 20210601

REACTIONS (2)
  - Dyspnoea [Unknown]
  - Lung opacity [Unknown]
